FAERS Safety Report 4800795-9 (Version None)
Quarter: 2005Q4

REPORT INFORMATION
  Report Type: 
  Country: None (occurrence: None)
  Receive Date: 20051011
  Receipt Date: 20050926
  Transmission Date: 20060501
  Serious: Yes (Death)
  Sender: FDA-Public Use
  Company Number: S05-NLD-03579-01

PATIENT
  Age: 79 Year
  Sex: Female

DRUGS (6)
  1. CIPRALEX (ESCITALOPRAM) [Suspect]
     Dosage: 10 MG QD PO
     Route: 048
  2. ATENOLOL [Concomitant]
  3. LORAZEPAM [Concomitant]
  4. DEXTRAN [Concomitant]
  5. AMARYL [Concomitant]
  6. METFORMIN [Concomitant]

REACTIONS (2)
  - CARDIAC DISORDER [None]
  - HAEMORRHAGE [None]
